FAERS Safety Report 9855346 (Version 1)
Quarter: 2014Q1

REPORT INFORMATION
  Report Type: Spontaneous
  Country: US (occurrence: US)
  Receive Date: 20140130
  Receipt Date: 20140130
  Transmission Date: 20141002
  Serious: Yes (Other)
  Sender: FDA-Public Use
  Company Number: US-SA-2014SA011601

PATIENT
  Age: 80 Year
  Sex: Male

DRUGS (3)
  1. MULTAQ [Suspect]
     Indication: ATRIAL FIBRILLATION
     Route: 048
     Dates: start: 20101123, end: 20140113
  2. CARVEDILOL [Concomitant]
     Route: 065
  3. CARVEDILOL [Concomitant]
     Route: 065

REACTIONS (3)
  - Ventricular fibrillation [Unknown]
  - Syncope [Unknown]
  - Drug ineffective [Unknown]
